FAERS Safety Report 15173239 (Version 2)
Quarter: 2020Q4

REPORT INFORMATION
  Report Type: Spontaneous
  Country: GB (occurrence: GB)
  Receive Date: 20180720
  Receipt Date: 20201009
  Transmission Date: 20210113
  Serious: Yes (Hospitalization)
  Sender: FDA-Public Use
  Company Number: PHHY2017GB204218

PATIENT
  Age: 52 Year
  Sex: Female

DRUGS (35)
  1. DOCETAXEL. [Suspect]
     Active Substance: DOCETAXEL
     Indication: BREAST CANCER METASTATIC
     Dosage: 108 MG, Q3W
     Route: 042
     Dates: start: 20151016, end: 20160108
  2. DOMPERIDONE [Concomitant]
     Active Substance: DOMPERIDONE
     Indication: CONSTIPATION
     Dosage: 10 MG, TID
     Route: 048
     Dates: start: 20170705, end: 20190129
  3. GLYCEROL [Concomitant]
     Active Substance: GLYCERIN
     Indication: CONSTIPATION
     Dosage: 4 G
     Route: 054
     Dates: start: 20180511, end: 201805
  4. ZOPICLONE [Concomitant]
     Active Substance: ZOPICLONE
     Indication: INSOMNIA
     Dosage: 3.75 MG, QD
     Route: 048
     Dates: start: 20170812, end: 20170822
  5. TRASTUZUMAB. [Suspect]
     Active Substance: TRASTUZUMAB
     Indication: HER2 POSITIVE BREAST CANCER
     Dosage: 450 MG, Q3W (INFUSION, SOLUTION)
     Route: 042
     Dates: start: 20151016, end: 20170324
  6. PERTUZUMAB. [Suspect]
     Active Substance: PERTUZUMAB
     Indication: HER2 POSITIVE BREAST CANCER
     Dosage: 840 MG
     Route: 042
     Dates: start: 20150924, end: 20150924
  7. SENNOSIDE B [Concomitant]
     Active Substance: SENNOSIDE B
     Indication: CONSTIPATION
     Dosage: 15 MG, QD
     Route: 048
     Dates: start: 20170706, end: 201707
  8. INSULINA HUMALOG [Concomitant]
     Indication: PRODUCT USED FOR UNKNOWN INDICATION
     Dosage: UNK, TID (16 U)
     Route: 058
  9. HYOSCINE N-BUTYLBROMIDE [Concomitant]
     Active Substance: BUTYLSCOPOLAMINE
     Indication: PRODUCT USED FOR UNKNOWN INDICATION
     Dosage: 20 MG, QD
     Route: 048
     Dates: start: 20171219, end: 2018
  10. TRASTUZUMAB. [Suspect]
     Active Substance: TRASTUZUMAB
     Indication: BREAST CANCER METASTATIC
     Dosage: 600 MG (INFUSION, SOLUTION)
     Route: 042
     Dates: start: 20150924, end: 20150924
  11. DOCUSATE SODIUM. [Concomitant]
     Active Substance: DOCUSATE SODIUM
     Indication: CONSTIPATION
     Dosage: 200 MG, BID
     Route: 048
     Dates: start: 20170706, end: 2018
  12. PIMPINELLA ANISUM [Concomitant]
     Active Substance: PIMPINELLA ANISUM WHOLE
     Indication: GASTROOESOPHAGEAL REFLUX DISEASE
     Dosage: 10 ML
     Route: 048
     Dates: start: 201707
  13. DIAZEPAM. [Concomitant]
     Active Substance: DIAZEPAM
     Indication: ANXIETY
     Dosage: UNK, TID
     Route: 048
     Dates: start: 20180515
  14. LANSOPRAZOLE. [Concomitant]
     Active Substance: LANSOPRAZOLE
     Indication: PRODUCT USED FOR UNKNOWN INDICATION
     Dosage: 30 MG, QD
     Route: 048
     Dates: end: 2017
  15. OMEPRAZOLE. [Concomitant]
     Active Substance: OMEPRAZOLE
     Indication: CONSTIPATION
     Dosage: 20 MG, BID
     Route: 048
     Dates: start: 20170710
  16. LEVEMIR [Concomitant]
     Active Substance: INSULIN DETEMIR
     Indication: PRODUCT USED FOR UNKNOWN INDICATION
     Dosage: UNK, QD (38 U)
     Route: 058
  17. AMITRIPTYLINE [Concomitant]
     Active Substance: AMITRIPTYLINE
     Indication: NEUROPATHY PERIPHERAL
     Dosage: 10 MG
     Route: 048
     Dates: start: 201608, end: 2017
  18. DEXAMETHASONE. [Concomitant]
     Active Substance: DEXAMETHASONE
     Dosage: 6 MG
     Route: 048
     Dates: start: 20181030, end: 20190123
  19. DEXAMETHASONE. [Concomitant]
     Active Substance: DEXAMETHASONE
     Dosage: 2 MG
     Route: 048
     Dates: start: 20181228, end: 201901
  20. TRASTUZUMAB EMTANSINE [Suspect]
     Active Substance: ADO-TRASTUZUMAB EMTANSINE
     Indication: BREAST CANCER METASTATIC
     Dosage: 260 MG, TIW
     Route: 042
     Dates: start: 20170510, end: 20170628
  21. BUDENOFALK [Concomitant]
     Active Substance: BUDESONIDE
     Indication: PRODUCT USED FOR UNKNOWN INDICATION
     Dosage: 9 MG, QD
     Route: 048
     Dates: start: 20180220, end: 20180320
  22. DOCETAXEL. [Suspect]
     Active Substance: DOCETAXEL
     Indication: HER2 POSITIVE BREAST CANCER
     Dosage: 132 MG, UNK
     Route: 042
     Dates: start: 20150925, end: 20151016
  23. MACROGOL COMP [Concomitant]
     Indication: CONSTIPATION
     Dosage: UNK, QD (1 OTHER)
     Route: 048
     Dates: start: 20170706
  24. CITALOPRAM [Concomitant]
     Active Substance: CITALOPRAM HYDROBROMIDE
     Indication: PRODUCT USED FOR UNKNOWN INDICATION
     Dosage: 20 MG, QD
     Route: 048
     Dates: end: 2017
  25. HALOPERIDOL. [Concomitant]
     Active Substance: HALOPERIDOL
     Indication: CONSTIPATION
     Dosage: 1.5 MG, BID
     Route: 048
     Dates: start: 20170706, end: 2017
  26. DULOXETINE. [Concomitant]
     Active Substance: DULOXETINE
     Indication: ANXIETY
     Dosage: 60 MG
     Route: 048
     Dates: start: 20181115
  27. ATEZOLIZUMAB. [Suspect]
     Active Substance: ATEZOLIZUMAB
     Indication: BREAST CANCER METASTATIC
     Dosage: 1200 MG, TIW
     Route: 042
     Dates: start: 20170510, end: 20180628
  28. ONDANSETRON [Concomitant]
     Active Substance: ONDANSETRON
     Indication: CONSTIPATION
     Dosage: 4 MG, BID
     Route: 048
     Dates: start: 20170718, end: 2017
  29. RANITIDINE. [Concomitant]
     Active Substance: RANITIDINE
     Indication: CONSTIPATION
     Dosage: 150 MG, BID
     Route: 048
     Dates: start: 20170706, end: 2018
  30. DEXAMETHASONE. [Concomitant]
     Active Substance: DEXAMETHASONE
     Indication: PRODUCT USED FOR UNKNOWN INDICATION
     Dosage: 4 MG, QD
     Route: 048
     Dates: start: 20181030, end: 20181113
  31. PERTUZUMAB. [Suspect]
     Active Substance: PERTUZUMAB
     Indication: BREAST CANCER METASTATIC
     Dosage: 420 MG, TIW
     Route: 042
     Dates: start: 20151016, end: 20170324
  32. LACTULOSE. [Concomitant]
     Active Substance: LACTULOSE
     Indication: CONSTIPATION
     Dosage: 10 ML, BID
     Route: 048
     Dates: start: 20170705, end: 2017
  33. METFORMIN [Concomitant]
     Active Substance: METFORMIN HYDROCHLORIDE
     Indication: PRODUCT USED FOR UNKNOWN INDICATION
     Dosage: 500 MG, BID
     Route: 048
  34. GABAPENTIN. [Concomitant]
     Active Substance: GABAPENTIN
     Indication: NEUROPATHY PERIPHERAL
     Dosage: 100 MG, TID
     Route: 048
     Dates: start: 20171219
  35. DEXAMETHASONE. [Concomitant]
     Active Substance: DEXAMETHASONE
     Dosage: 4 MG, BID (0.5DAY)
     Route: 048
     Dates: start: 20181023, end: 20181028

REACTIONS (1)
  - Bundle branch block left [Recovered/Resolved]

NARRATIVE: CASE EVENT DATE: 20170619
